FAERS Safety Report 24774281 (Version 1)
Quarter: 2024Q4

REPORT INFORMATION
  Report Type: Report from Study
  Country: GB (occurrence: GB)
  Receive Date: 20241225
  Receipt Date: 20241225
  Transmission Date: 20250114
  Serious: Yes (Other)
  Sender: JOHNSON AND JOHNSON
  Company Number: GB-JNJFOC-20241081564

PATIENT
  Age: 59 Year
  Sex: Female

DRUGS (1)
  1. STELARA [Suspect]
     Active Substance: USTEKINUMAB
     Indication: Psoriasis
     Route: 058
     Dates: start: 202407

REACTIONS (3)
  - Lower respiratory tract infection [Recovering/Resolving]
  - Kidney infection [Recovering/Resolving]
  - Head discomfort [Recovered/Resolved]

NARRATIVE: CASE EVENT DATE: 20240101
